FAERS Safety Report 15385768 (Version 1)
Quarter: 2018Q4

REPORT INFORMATION
  Report Type: Spontaneous
  Country: US (occurrence: US)
  Receive Date: 20180914
  Receipt Date: 20180914
  Transmission Date: 20190204
  Serious: No
  Sender: FDA-Public Use
  Company Number: US-CIPLA LTD.-2018US19262

PATIENT

DRUGS (11)
  1. PLAVIX [Concomitant]
     Active Substance: CLOPIDOGREL BISULFATE
     Indication: ANTIPLATELET THERAPY
     Dosage: 75 MG, QD
     Route: 065
  2. ASPIRIN                            /00002701/ [Concomitant]
     Active Substance: ASPIRIN
     Indication: ANTIPLATELET THERAPY
     Dosage: 81 MG, QD
     Route: 065
  3. NAPROXEN DR [Suspect]
     Active Substance: NAPROXEN
     Indication: PAIN
     Dosage: 375 MG, BID,1 TABLET
     Route: 048
     Dates: start: 20180519, end: 20180529
  4. LISINOPRIL. [Concomitant]
     Active Substance: LISINOPRIL
     Indication: PRODUCT USED FOR UNKNOWN INDICATION
     Dosage: 20 MG, QD
     Route: 065
     Dates: start: 2000
  5. MINERALS [Concomitant]
     Active Substance: MINERALS
     Indication: SUPPLEMENTATION THERAPY
     Dosage: UNK
     Route: 065
  6. CELEXA [Concomitant]
     Active Substance: CITALOPRAM HYDROBROMIDE
     Indication: DEPRESSION
     Dosage: 20 MG, QD
     Route: 065
  7. HYDROCHLOROTHIAZIDE. [Concomitant]
     Active Substance: HYDROCHLOROTHIAZIDE
     Indication: DIURETIC THERAPY
     Dosage: 25 MG, QD
     Route: 065
     Dates: start: 2000
  8. RABEPRAZOLE [Concomitant]
     Active Substance: RABEPRAZOLE
     Indication: GASTRIC PH DECREASED
     Dosage: 20 MG, QD
     Route: 065
     Dates: start: 2000
  9. VITAMINS                           /00067501/ [Concomitant]
     Active Substance: VITAMINS
     Indication: SUPPLEMENTATION THERAPY
     Dosage: UNK
     Route: 065
  10. CALCIMAX                           /00751520/ [Concomitant]
     Indication: SUPPLEMENTATION THERAPY
     Dosage: UNK
     Route: 065
  11. FENOFIBRATE. [Concomitant]
     Active Substance: FENOFIBRATE
     Indication: PRODUCT USED FOR UNKNOWN INDICATION
     Dosage: 145 MG, QD
     Route: 065

REACTIONS (2)
  - Blood pressure increased [Not Recovered/Not Resolved]
  - Body temperature increased [Unknown]

NARRATIVE: CASE EVENT DATE: 201805
